FAERS Safety Report 23762657 (Version 1)
Quarter: 2024Q2

REPORT INFORMATION
  Report Type: Spontaneous
  Country: US (occurrence: US)
  Receive Date: 20240419
  Receipt Date: 20240419
  Transmission Date: 20240716
  Serious: No
  Sender: FDA-Public Use
  Company Number: US-PHATHOM PHARMACEUTICALS INC.-2024PHT00098

PATIENT
  Age: 72 Year
  Sex: Female
  Weight: 72.575 kg

DRUGS (2)
  1. VOQUEZNA [Suspect]
     Active Substance: VONOPRAZAN FUMARATE
     Indication: Gastrooesophageal reflux disease
     Dosage: 20 MG, 1X/DAY (FOR 8-WEEK-COURSE)
     Route: 048
     Dates: start: 20231230, end: 20240223
  2. VOQUEZNA [Suspect]
     Active Substance: VONOPRAZAN FUMARATE
     Indication: Barrett^s oesophagus

REACTIONS (2)
  - Blood urea increased [Unknown]
  - Sciatica [Unknown]

NARRATIVE: CASE EVENT DATE: 20240101
